FAERS Safety Report 8848039 (Version 3)
Quarter: 2012Q4

REPORT INFORMATION
  Report Type: 
  Country: US (occurrence: US)
  Receive Date: 20121018
  Receipt Date: 20121120
  Transmission Date: 20130627
  Serious: Yes (Disabling)
  Sender: FDA-Public Use
  Company Number: US-ELI_LILLY_AND_COMPANY-US200801006350

PATIENT
  Sex: Female

DRUGS (4)
  1. HUMALOG LISPRO [Suspect]
     Indication: DIABETES MELLITUS
     Dosage: UNK
     Dates: end: 2008
  2. HUMALOG LISPRO [Suspect]
     Indication: DIABETES MELLITUS
     Dosage: UNK, prn
     Dates: start: 2008
  3. LANTUS [Concomitant]
     Indication: DIABETES MELLITUS
  4. TIMOLOL [Concomitant]
     Route: 047

REACTIONS (6)
  - Blindness [Not Recovered/Not Resolved]
  - Blood glucose increased [Recovered/Resolved]
  - Retinopathy [Not Recovered/Not Resolved]
  - Macular oedema [Not Recovered/Not Resolved]
  - Pain in extremity [Unknown]
  - Hypoacusis [Not Recovered/Not Resolved]
